FAERS Safety Report 11810729 (Version 3)
Quarter: 2017Q2

REPORT INFORMATION
  Report Type: Spontaneous
  Country: GB (occurrence: GB)
  Receive Date: 20151208
  Receipt Date: 20170404
  Transmission Date: 20170829
  Serious: Yes (Other)
  Sender: FDA-Public Use
  Company Number: GB-GLAXOSMITHKLINE-GB2015GSK173003

PATIENT
  Age: 48 Year
  Sex: Male

DRUGS (1)
  1. VENTOLIN [Suspect]
     Active Substance: ALBUTEROL SULFATE
     Indication: PRODUCT USED FOR UNKNOWN INDICATION
     Dosage: UNK

REACTIONS (4)
  - Product physical issue [Not Recovered/Not Resolved]
  - Product quality issue [Unknown]
  - Choking [Recovered/Resolved]
  - Foreign body aspiration [Recovered/Resolved]

NARRATIVE: CASE EVENT DATE: 201412
